FAERS Safety Report 18997262 (Version 1)
Quarter: 2021Q1

REPORT INFORMATION
  Report Type: Spontaneous
  Country: US (occurrence: US)
  Receive Date: 20210311
  Receipt Date: 20210311
  Transmission Date: 20210420
  Serious: No
  Sender: FDA-Public Use
  Company Number: None

PATIENT
  Age: 66 Year
  Sex: Female
  Weight: 57.7 kg

DRUGS (3)
  1. LEUCOVORIN CALCIUM 700MG [Suspect]
     Active Substance: LEUCOVORIN CALCIUM
     Dates: end: 20210215
  2. ELOXATIN [Suspect]
     Active Substance: OXALIPLATIN
     Dates: end: 20210215
  3. 5?FLUOROURACIL (5?FU) 4000MG [Suspect]
     Active Substance: FLUOROURACIL
     Dates: end: 20210215

REACTIONS (8)
  - Aspartate aminotransferase increased [None]
  - Malaise [None]
  - Alanine aminotransferase increased [None]
  - Loss of consciousness [None]
  - Diarrhoea [None]
  - Vomiting [None]
  - Abdominal pain [None]
  - Constipation [None]

NARRATIVE: CASE EVENT DATE: 20210301
